FAERS Safety Report 17173342 (Version 5)
Quarter: 2020Q1

REPORT INFORMATION
  Report Type: Report from Study
  Country: US (occurrence: US)
  Receive Date: 20191218
  Receipt Date: 20200303
  Transmission Date: 20200409
  Serious: Yes (Death, Hospitalization)
  Sender: FDA-Public Use
  Company Number: US-ACTELION-A-US2019-197715

PATIENT
  Age: 61 Year
  Sex: Male
  Weight: 190.48 kg

DRUGS (6)
  1. UPTRAVI [Suspect]
     Active Substance: SELEXIPAG
     Dosage: 600 MCG, BID
     Route: 048
  2. UPTRAVI [Suspect]
     Active Substance: SELEXIPAG
     Indication: PULMONARY ARTERIAL HYPERTENSION
     Dosage: 800 MCG, BID
     Route: 048
  3. OPSUMIT [Suspect]
     Active Substance: MACITENTAN
     Indication: PULMONARY ARTERIAL HYPERTENSION
     Dosage: 10 MG, QD
     Route: 048
  4. ADEMPAS [Concomitant]
     Active Substance: RIOCIGUAT
  5. ELIQUIS [Concomitant]
     Active Substance: APIXABAN
  6. UPTRAVI [Suspect]
     Active Substance: SELEXIPAG
     Dosage: 200 MCG, BID
     Route: 048

REACTIONS (20)
  - Dizziness [Not Recovered/Not Resolved]
  - Death [Fatal]
  - Loss of consciousness [Unknown]
  - Limb discomfort [Unknown]
  - Decreased appetite [Unknown]
  - Malaise [Recovering/Resolving]
  - Headache [Unknown]
  - Polyuria [Unknown]
  - Dyspnoea [Recovering/Resolving]
  - Anaemia [Unknown]
  - Large intestine polyp [Unknown]
  - Pain in extremity [Recovered/Resolved]
  - Chest pain [Unknown]
  - Blood potassium decreased [Unknown]
  - Pericardial effusion [Unknown]
  - Abdominal discomfort [Recovering/Resolving]
  - Nausea [Unknown]
  - Cardiac failure congestive [Unknown]
  - Peripheral swelling [Not Recovered/Not Resolved]
  - Pain [Recovered/Resolved]

NARRATIVE: CASE EVENT DATE: 20200202
